FAERS Safety Report 5197755-8 (Version None)
Quarter: 2006Q4

REPORT INFORMATION
  Report Type: 
  Country: None (occurrence: None)
  Receive Date: 20061228
  Receipt Date: 20061214
  Transmission Date: 20070319
  Serious: Yes (Life-Threatening, Other)
  Sender: FDA-Public Use
  Company Number: 2006RR-04941

PATIENT
  Age: 84 Year
  Sex: Male

DRUGS (6)
  1. AMOXICILLIN [Suspect]
     Indication: TOOTH INFECTION
     Dates: start: 20061103, end: 20061103
  2. ENZIRA(ENZIRA) [Suspect]
     Indication: INFLUENZA IMMUNISATION
     Dosage: INTRAMUSCULAR
     Route: 030
     Dates: start: 20061103, end: 20061103
  3. BETAMETHASONE [Concomitant]
  4. QVAR 40 [Concomitant]
  5. SALBUTAMOL (SALBUTAMOL) [Concomitant]
  6. ZOLADEX [Concomitant]

REACTIONS (1)
  - HYPERSENSITIVITY [None]
